FAERS Safety Report 6730743-6 (Version None)
Quarter: 2010Q2

REPORT INFORMATION
  Report Type: 
  Country: None (occurrence: None)
  Receive Date: 20100518
  Receipt Date: 20100510
  Transmission Date: 20101027
  Serious: Yes (Hospitalization, Disabling, Other)
  Sender: FDA-Public Use
  Company Number: DE-BAYER-201025271GPV

PATIENT
  Age: 39 Year
  Sex: Female

DRUGS (1)
  1. YASMIN [Suspect]
     Indication: CONTRACEPTION
     Route: 048
     Dates: start: 20060101, end: 20080301

REACTIONS (10)
  - AORTIC THROMBOSIS [None]
  - ASTHENIA [None]
  - CYANOSIS [None]
  - EMOTIONAL DISORDER [None]
  - PAIN IN EXTREMITY [None]
  - PERIPHERAL COLDNESS [None]
  - PHYSICAL DISABILITY [None]
  - SLEEP DISORDER [None]
  - SUICIDAL IDEATION [None]
  - THROMBOSIS [None]
